FAERS Safety Report 7517053-4 (Version None)
Quarter: 2011Q2

REPORT INFORMATION
  Report Type: 
  Country: None (occurrence: None)
  Receive Date: 20110601
  Receipt Date: 20110517
  Transmission Date: 20111010
  Serious: Yes (Hospitalization)
  Sender: FDA-Public Use
  Company Number: US-CELGENEUS-163-20785-11040968

PATIENT
  Sex: Female
  Weight: 85 kg

DRUGS (23)
  1. FLUIDS [Concomitant]
     Route: 051
     Dates: start: 20110501
  2. PANTOPRAZOLE [Concomitant]
     Indication: PROPHYLAXIS
     Dosage: 40 MILLIGRAM
     Route: 065
  3. THALOMID [Suspect]
     Indication: MULTIPLE MYELOMA
     Dosage: 100 MILLIGRAM
     Route: 048
     Dates: start: 20110307
  4. WARFARIN SODIUM [Concomitant]
     Route: 065
  5. MELPHALAN HYDROCHLORIDE [Concomitant]
     Indication: MULTIPLE MYELOMA
     Dosage: .25 MILLIGRAM/KILOGRAM
     Route: 048
     Dates: start: 20110307
  6. PREDNISONE [Concomitant]
     Indication: MULTIPLE MYELOMA
     Dosage: 40 MILLIGRAM
     Route: 048
     Dates: start: 20110307
  7. PREDNISONE [Concomitant]
     Dosage: 20 MILLIGRAM
     Route: 048
  8. NEUTRA-PHOS [Concomitant]
     Route: 065
  9. AVELOX [Concomitant]
     Route: 065
  10. FLUIDS [Concomitant]
     Route: 051
  11. LASIX [Concomitant]
     Route: 065
  12. MORPHINE SULFATE [Concomitant]
     Indication: PAIN
     Dosage: 15 MILLIGRAM
     Route: 065
  13. MULTI-VITAMINS [Concomitant]
     Route: 065
  14. PAMIDRONATE DISODIUM [Concomitant]
     Route: 065
     Dates: start: 20110512
  15. LOVENOX [Concomitant]
     Route: 065
     Dates: start: 20110401, end: 20110401
  16. PREDNISONE [Concomitant]
     Dosage: 60 MILLIGRAM
     Route: 048
  17. ASPIRIN [Concomitant]
     Indication: PROPHYLAXIS
     Dosage: 81 MILLIGRAM
     Route: 065
  18. COMPAZINE [Concomitant]
     Indication: NAUSEA
     Dosage: 10 MILLIGRAM
     Route: 065
  19. COMPAZINE [Concomitant]
     Indication: VOMITING
  20. DEXAMETHASONE [Concomitant]
     Route: 048
     Dates: start: 20110414
  21. ASCORBIC ACID [Concomitant]
     Dosage: 500 MILLIGRAM
     Route: 065
  22. VALTREX [Concomitant]
     Indication: PROPHYLAXIS
     Dosage: 500 MILLIGRAM
     Route: 065
  23. WARFARIN SODIUM [Concomitant]
     Route: 065
     Dates: start: 20110401

REACTIONS (3)
  - GASTROINTESTINAL HAEMORRHAGE [None]
  - MULTIPLE MYELOMA [None]
  - PNEUMONIA VIRAL [None]
